FAERS Safety Report 8990943 (Version 1)
Quarter: 2012Q4

REPORT INFORMATION
  Report Type: Spontaneous
  Country: US (occurrence: None)
  Receive Date: 20121227
  Receipt Date: 20121227
  Transmission Date: 20130627
  Serious: Yes (Other)
  Sender: FDA-Public Use
  Company Number: None

PATIENT
  Sex: Female

DRUGS (2)
  1. ANASTROZOLE [Suspect]
     Indication: BREAST CANCER
     Dosage: 1mg  QD PO
     Route: 048
     Dates: start: 20111201
  2. ANASTROZOLE [Suspect]
     Indication: BREAST CANCER
     Dates: start: 20121222

REACTIONS (1)
  - Intraocular pressure increased [None]
